FAERS Safety Report 5021404-2 (Version None)
Quarter: 2006Q2

REPORT INFORMATION
  Report Type: 
  Country: None (occurrence: None)
  Receive Date: 20060425
  Receipt Date: 20050225
  Transmission Date: 20061013
  Serious: No
  Sender: FDA-Public Use
  Company Number: WAES 0502USA03571

PATIENT

DRUGS (1)
  1. SINGULAIR [Suspect]
     Dosage: UNK UNK PO
     Route: 048

REACTIONS (1)
  - PERSONALITY CHANGE [None]
